FAERS Safety Report 19091835 (Version 1)
Quarter: 2021Q2

REPORT INFORMATION
  Report Type: Spontaneous
  Country: US (occurrence: US)
  Receive Date: 20210405
  Receipt Date: 20210405
  Transmission Date: 20210717
  Serious: Yes (Hospitalization)
  Sender: FDA-Public Use
  Company Number: None

PATIENT
  Age: 89 Year
  Sex: Male
  Weight: 80 kg

DRUGS (1)
  1. ENOXAPARIN (GENERIC) (ENOXAPARIN 80MG/0.8ML INJ(GENERIC) [Suspect]
     Active Substance: ENOXAPARIN
     Indication: ATRIAL FIBRILLATION
     Route: 058
     Dates: start: 20210119, end: 20210318

REACTIONS (3)
  - Haemorrhage [None]
  - Subdural haematoma [None]
  - Fall [None]

NARRATIVE: CASE EVENT DATE: 20210318
